FAERS Safety Report 10186352 (Version 1)
Quarter: 2014Q2

REPORT INFORMATION
  Report Type: Spontaneous
  Country: US (occurrence: US)
  Receive Date: 20140521
  Receipt Date: 20140521
  Transmission Date: 20141212
  Serious: No
  Sender: FDA-Public Use
  Company Number: US-ASTRAZENECA-2014SE08981

PATIENT
  Sex: Female
  Weight: 59 kg

DRUGS (6)
  1. PULMICORT FLEXHALER [Suspect]
     Indication: ASTHMA
     Dosage: 180 MCG, 1 PUFF AT NIGHT
     Route: 055
     Dates: start: 2014
  2. UNSPECIFIED [Suspect]
     Route: 065
  3. XOPENEX [Concomitant]
  4. SYNTHROID [Concomitant]
     Indication: THYROID DISORDER
     Dosage: 75MCG DAILY
  5. XANAX [Concomitant]
     Indication: ANXIETY
  6. ALBUTEROL [Concomitant]

REACTIONS (8)
  - Chest discomfort [Unknown]
  - Fear [Unknown]
  - Memory impairment [Unknown]
  - Hypertension [Unknown]
  - Feeling abnormal [Unknown]
  - Adverse event [Unknown]
  - Abnormal behaviour [Unknown]
  - Intentional product misuse [Unknown]
